FAERS Safety Report 21508861 (Version 1)
Quarter: 2022Q4

REPORT INFORMATION
  Report Type: Spontaneous
  Country: US (occurrence: None)
  Receive Date: 20221026
  Receipt Date: 20221026
  Transmission Date: 20230113
  Serious: Yes (Other)
  Sender: FDA-Public Use
  Company Number: None

PATIENT
  Age: 67 Year
  Sex: Female
  Weight: 83.7 kg

DRUGS (9)
  1. EZETIMIBE [Suspect]
     Active Substance: EZETIMIBE
     Indication: Blood cholesterol increased
     Dosage: 1 CAPSULE AT BEDTIME?
     Route: 048
     Dates: start: 20221018, end: 20221025
  2. ROSUVASTATIN [Concomitant]
     Active Substance: ROSUVASTATIN
  3. Dr Sandra Cabot^s Livatone Plus [Concomitant]
  4. fish oils [Concomitant]
  5. Centrum Silver Women [Concomitant]
  6. ECOTRIN [Concomitant]
     Active Substance: ASPIRIN
  7. ACETYLCYSTEINE [Concomitant]
     Active Substance: ACETYLCYSTEINE
  8. Selenomune [Concomitant]
  9. ADVIL [Concomitant]
     Active Substance: IBUPROFEN

REACTIONS (5)
  - Arthralgia [None]
  - Myalgia [None]
  - Bedridden [None]
  - Malaise [None]
  - Malaise [None]

NARRATIVE: CASE EVENT DATE: 20221025
